FAERS Safety Report 7084587-9 (Version None)
Quarter: 2010Q4

REPORT INFORMATION
  Report Type: 
  Country: None (occurrence: None)
  Receive Date: 20101104
  Receipt Date: 20101027
  Transmission Date: 20110411
  Serious: Yes (Death, Hospitalization, Other)
  Sender: FDA-Public Use
  Company Number: BE-PFIZER INC-2010136854

PATIENT
  Age: 33 Year
  Sex: Female

DRUGS (4)
  1. ATORVASTATIN [Suspect]
  2. IBUPROFEN [Suspect]
  3. COLCHICINE [Suspect]
  4. PROPOFOL [Suspect]
     Dosage: UNK

REACTIONS (6)
  - ARRHYTHMIA [None]
  - DRUG INTERACTION [None]
  - HYPERAMMONAEMIC ENCEPHALOPATHY [None]
  - HYPOXIA [None]
  - OVERDOSE [None]
  - RHABDOMYOLYSIS [None]
